FAERS Safety Report 7810751-4 (Version None)
Quarter: 2011Q4

REPORT INFORMATION
  Report Type: 
  Country: None (occurrence: None)
  Receive Date: 20111011
  Receipt Date: 20110926
  Transmission Date: 20120403
  Serious: Yes (Other)
  Sender: FDA-Public Use
  Company Number: 2011MA014647

PATIENT
  Sex: Female

DRUGS (1)
  1. DIAZEPAM [Suspect]
     Indication: ANXIETY
     Dosage: 24 MG;QD
     Dates: start: 20060101

REACTIONS (10)
  - PHOTOPHOBIA [None]
  - ABDOMINAL DISCOMFORT [None]
  - BEDRIDDEN [None]
  - NEUROPATHY PERIPHERAL [None]
  - WEIGHT DECREASED [None]
  - DECREASED APPETITE [None]
  - MYALGIA [None]
  - GAIT DISTURBANCE [None]
  - DISTURBANCE IN ATTENTION [None]
  - ORAL PAIN [None]
